APPROVED DRUG PRODUCT: NIMODIPINE
Active Ingredient: NIMODIPINE
Strength: 3MG/ML
Dosage Form/Route: SOLUTION;ORAL
Application: A216937 | Product #001
Applicant: ANNORA PHARMA PRIVATE LTD
Approved: Jul 9, 2024 | RLD: No | RS: Yes | Type: RX